FAERS Safety Report 4340277-4 (Version None)
Quarter: 2004Q2

REPORT INFORMATION
  Report Type: 
  Country: None (occurrence: None)
  Receive Date: 20040412
  Receipt Date: 20040402
  Transmission Date: 20050107
  Serious: Yes (Hospitalization)
  Sender: FDA-Public Use
  Company Number: CZ-JNJFOC-20040400655

PATIENT
  Age: 47 Year
  Sex: Female

DRUGS (4)
  1. REMICADE [Suspect]
     Indication: RHEUMATOID ARTHRITIS
     Dosage: 100 MG, INTRAVENOUS
     Route: 042
     Dates: start: 20020701
  2. METHOTREXATE [Concomitant]
  3. MEDROL [Concomitant]
  4. VIOXX [Concomitant]

REACTIONS (1)
  - KNEE ARTHROPLASTY [None]
